FAERS Safety Report 24005786 (Version 1)
Quarter: 2024Q2

REPORT INFORMATION
  Report Type: Spontaneous
  Country: US (occurrence: US)
  Receive Date: 20240624
  Receipt Date: 20240624
  Transmission Date: 20240716
  Serious: No
  Sender: FDA-Public Use
  Company Number: US-IPSEN Group, Research and Development-2024-11840

PATIENT
  Sex: Male
  Weight: 107 kg

DRUGS (2)
  1. SOMATULINE DEPOT [Suspect]
     Active Substance: LANREOTIDE ACETATE
     Indication: Hepatic cancer
     Dosage: UNDER THE SKIN
     Route: 058
  2. SOMATULINE DEPOT [Suspect]
     Active Substance: LANREOTIDE ACETATE
     Indication: Endocrine neoplasm malignant

REACTIONS (5)
  - Muscular weakness [Unknown]
  - Joint swelling [Unknown]
  - Tendon pain [Unknown]
  - Weight increased [Unknown]
  - Arthralgia [Unknown]
